FAERS Safety Report 19836901 (Version 2)
Quarter: 2022Q1

REPORT INFORMATION
  Report Type: Report from Study
  Country: CA (occurrence: CA)
  Receive Date: 20210914
  Receipt Date: 20220225
  Transmission Date: 20220423
  Serious: Yes (Other)
  Sender: FDA-Public Use
  Company Number: CA-UCBSA-2021042000

PATIENT
  Age: 31 Year
  Sex: Female

DRUGS (4)
  1. CERTOLIZUMAB PEGOL [Suspect]
     Active Substance: CERTOLIZUMAB PEGOL
     Indication: Rheumatoid arthritis
     Dosage: 400 MILLIGRAM, EV 2 WEEKS(QOW)
     Route: 058
     Dates: start: 20210805
  2. CERTOLIZUMAB PEGOL [Suspect]
     Active Substance: CERTOLIZUMAB PEGOL
     Dosage: 200 MILLIGRAM, EV 2 WEEKS(QOW)
     Route: 058
  3. PROGESTERONE [Concomitant]
     Active Substance: PROGESTERONE
     Indication: Product used for unknown indication
  4. ASPIRIN [Concomitant]
     Active Substance: ASPIRIN
     Indication: Thrombosis

REACTIONS (5)
  - Food poisoning [Not Recovered/Not Resolved]
  - Fatigue [Unknown]
  - Respiratory tract irritation [Unknown]
  - Chest pain [Unknown]
  - Maternal exposure during pregnancy [Unknown]

NARRATIVE: CASE EVENT DATE: 20210805
